FAERS Safety Report 19570329 (Version 1)
Quarter: 2021Q3

REPORT INFORMATION
  Report Type: Spontaneous
  Country: DE (occurrence: DE)
  Receive Date: 20210716
  Receipt Date: 20210716
  Transmission Date: 20211014
  Serious: Yes (Other)
  Sender: FDA-Public Use
  Company Number: DE-GLENMARK PHARMACEUTICALS-2021GMK066660

PATIENT

DRUGS (3)
  1. NEBIVOLOL GLENMARK 5MG TABLETTEN [Suspect]
     Active Substance: NEBIVOLOL
     Indication: HYPERTENSION
     Dosage: 1 DOSAGE FORM, AM
     Route: 065
     Dates: start: 202011, end: 20210701
  2. VALSACOR [Concomitant]
     Active Substance: VALSARTAN
     Indication: HYPERTENSION
     Dosage: UNK
     Route: 065
  3. NEBIVOLOL GLENMARK 5MG TABLETTEN [Suspect]
     Active Substance: NEBIVOLOL
     Dosage: 1.5 DOSAGE FORM, QD (ONE TABLET IN MORNING AND HALF IN EVENING)
     Route: 065
     Dates: start: 20210701

REACTIONS (2)
  - Arrhythmia [Not Recovered/Not Resolved]
  - Product use issue [Unknown]

NARRATIVE: CASE EVENT DATE: 20210701
